FAERS Safety Report 13139328 (Version 1)
Quarter: 2017Q1

REPORT INFORMATION
  Report Type: Report from Study
  Country: US (occurrence: US)
  Receive Date: 20170123
  Receipt Date: 20170123
  Transmission Date: 20170428
  Serious: Yes (Other)
  Sender: FDA-Public Use
  Company Number: US-EGALET US INC-US-2017EGA000116

PATIENT

DRUGS (4)
  1. SPRIX [Suspect]
     Active Substance: KETOROLAC TROMETHAMINE
     Dosage: 1 SPRAY IN 1 NOSTRIL
     Route: 045
     Dates: start: 20170109, end: 20170109
  2. SPRIX [Suspect]
     Active Substance: KETOROLAC TROMETHAMINE
     Indication: ADNEXA UTERI PAIN
     Dosage: 1 SPRAY IN 1 NOSTRIL
     Route: 045
     Dates: start: 20170106, end: 20170106
  3. CYMBALTA [Concomitant]
     Active Substance: DULOXETINE HYDROCHLORIDE
     Indication: PRODUCT USED FOR UNKNOWN INDICATION
     Dosage: UNK
  4. SUMATRIPTAN. [Concomitant]
     Active Substance: SUMATRIPTAN
     Indication: PRODUCT USED FOR UNKNOWN INDICATION
     Dosage: UNK, PRN

REACTIONS (2)
  - Radiculopathy [Recovered/Resolved]
  - Syncope [Recovered/Resolved]

NARRATIVE: CASE EVENT DATE: 20170106
